FAERS Safety Report 12890484 (Version 4)
Quarter: 2017Q1

REPORT INFORMATION
  Report Type: Spontaneous
  Country: IT (occurrence: IT)
  Receive Date: 20161027
  Receipt Date: 20170127
  Transmission Date: 20170428
  Serious: Yes (Other)
  Sender: FDA-Public Use
  Company Number: IT-MYLANLABS-2016M1045340

PATIENT

DRUGS (9)
  1. VAGILEN [Suspect]
     Active Substance: METRONIDAZOLE
     Indication: DIVERTICULITIS
     Dosage: 1500 MG, QD
     Route: 048
     Dates: start: 20160930, end: 20161011
  2. SMOFKABIVEN [Concomitant]
     Active Substance: UNSPECIFIED INGREDIENT
     Indication: PARENTERAL NUTRITION
     Dosage: 1 DF
     Dates: start: 20160908
  3. ATENOLOL. [Concomitant]
     Active Substance: ATENOLOL
     Indication: HYPERTENSION
     Dosage: 100 MG
     Route: 048
     Dates: start: 20160912
  4. MESALAZINE [Suspect]
     Active Substance: MESALAMINE
     Indication: DIVERTICULITIS
     Dosage: 2400 MG, QD
     Route: 048
     Dates: start: 20160913, end: 20161011
  5. CLEXANE [Suspect]
     Active Substance: ENOXAPARIN SODIUM
     Indication: DEEP VEIN THROMBOSIS
     Dosage: 4 IU, QD
     Route: 058
     Dates: start: 20160907, end: 20161010
  6. PIPERACILLIN AND TAZOBACTAM [Concomitant]
     Active Substance: PIPERACILLIN SODIUM\TAZOBACTAM SODIUM
     Indication: PERITONITIS
     Dosage: 13.5 G
     Route: 042
     Dates: start: 20160907
  7. ANAFRANIL [Concomitant]
     Active Substance: CLOMIPRAMINE HYDROCHLORIDE
     Indication: MAJOR DEPRESSION
     Dosage: 25 MG
     Route: 048
     Dates: start: 20160912
  8. OMEPRAZOLE TEVA                    /00661201/ [Concomitant]
     Active Substance: OMEPRAZOLE
     Indication: ADENOCARCINOMA GASTRIC
     Dosage: 40 MG
     Route: 048
     Dates: start: 20160915
  9. OLANZAPINE. [Concomitant]
     Active Substance: OLANZAPINE
     Indication: MAJOR DEPRESSION
     Dosage: 10 MG
     Route: 048
     Dates: start: 20160912

REACTIONS (3)
  - Product use issue [Unknown]
  - Thrombocytopenia [Unknown]
  - Pancytopenia [Unknown]

NARRATIVE: CASE EVENT DATE: 20160913
